FAERS Safety Report 5265140-6 (Version None)
Quarter: 2007Q1

REPORT INFORMATION
  Report Type: 
  Country: None (occurrence: None)
  Receive Date: 20061121
  Receipt Date: 20060810
  Transmission Date: 20070707
  Serious: No
  Sender: FDA-Public Use
  Company Number: TPA2006A01328

PATIENT
  Age: 65 Year
  Sex: Female
  Weight: 61.6892 kg

DRUGS (3)
  1. ROZEREM [Suspect]
     Indication: INSOMNIA
     Dosage: 8 MG, HS, PER ORAL
     Route: 048
     Dates: start: 20060809
  2. PAXIL (PAROXETINE HYDROCHLORIDE) (30 MILLIGRAM) [Concomitant]
  3. TRAZODONE (TRAZODONE) (50 MILLIGRAM) [Concomitant]

REACTIONS (1)
  - NASAL DRYNESS [None]
